FAERS Safety Report 9292307 (Version 17)
Quarter: 2018Q1

REPORT INFORMATION
  Report Type: Report from Study
  Country: BR (occurrence: BR)
  Receive Date: 20130516
  Receipt Date: 20180308
  Transmission Date: 20180509
  Serious: Yes (Life-Threatening, Other)
  Sender: FDA-Public Use
  Company Number: PHHY2013BR047478

PATIENT
  Age: 55 Year
  Sex: Female
  Weight: 53 kg

DRUGS (16)
  1. GILENYA [Suspect]
     Active Substance: FINGOLIMOD HYDROCHLORIDE
     Dosage: 0.5 MG, QD
     Route: 048
  2. GILENYA [Suspect]
     Active Substance: FINGOLIMOD HYDROCHLORIDE
     Dosage: 0.5 MG, QD
     Route: 048
     Dates: end: 201709
  3. FLUOXETINE [Concomitant]
     Active Substance: FLUOXETINE HYDROCHLORIDE
     Indication: FIBROMYALGIA
     Dosage: 2 DF, (0.5 MG) QD
     Route: 048
  4. CARBAMAZEPINE. [Concomitant]
     Active Substance: CARBAMAZEPINE
     Indication: HEADACHE
     Dosage: 1 DF (200 MG), PRN, 5 YEARS AGO
     Route: 048
  5. GILENYA [Suspect]
     Active Substance: FINGOLIMOD HYDROCHLORIDE
     Indication: MULTIPLE SCLEROSIS
     Dosage: 0.5 MG, QD
     Route: 048
     Dates: start: 20130509
  6. GILENYA [Suspect]
     Active Substance: FINGOLIMOD HYDROCHLORIDE
     Dosage: 0.5 MG, QD
     Route: 048
  7. OSTEOFORM (CALCIUM) [Suspect]
     Active Substance: CALCIUM
     Indication: OSTEOPOROSIS
     Dosage: 70 MG, FOR 2 DAYS ONLY
     Route: 048
  8. INFLUENZA VACCINE [Suspect]
     Active Substance: INFLUENZA VIRUS VACCINE
     Indication: IMMUNISATION
     Dosage: 1 DF, UNK
     Route: 065
     Dates: start: 201305
  9. CLONAZEPAM. [Concomitant]
     Active Substance: CLONAZEPAM
     Indication: INSOMNIA
     Dosage: 2 MG, QD MORE THAN 3 YEARS AGO
     Route: 048
  10. GILENYA [Suspect]
     Active Substance: FINGOLIMOD HYDROCHLORIDE
     Dosage: 0.5 MG, QD
     Route: 048
  11. OMEPRAZOLE. [Concomitant]
     Active Substance: OMEPRAZOLE
     Indication: ABDOMINAL DISCOMFORT
     Dosage: 2 DF, QD
     Route: 048
  12. FLUOXETINE [Concomitant]
     Active Substance: FLUOXETINE HYDROCHLORIDE
     Indication: DEPRESSION
     Dosage: 20 MG, QD
     Route: 048
  13. GILENYA [Suspect]
     Active Substance: FINGOLIMOD HYDROCHLORIDE
     Dosage: 0.5 MG, QD
     Route: 048
  14. CALDE K2 [Suspect]
     Active Substance: CALCIUM\MENAQUINONE 6\VITAMIN D
     Indication: OSTEOPOROSIS
     Dosage: FOR 2 DAYS ONLY
     Route: 048
  15. GILENYA [Suspect]
     Active Substance: FINGOLIMOD HYDROCHLORIDE
     Dosage: 0.5 MG, QD
     Route: 048
  16. FINGOLIMOD HYDROCHLORIDE [Suspect]
     Active Substance: FINGOLIMOD HYDROCHLORIDE
     Indication: PRODUCT USED FOR UNKNOWN INDICATION
     Dosage: UNK
     Route: 065
     Dates: start: 201710

REACTIONS (50)
  - Fatigue [Not Recovered/Not Resolved]
  - Agitation [Recovering/Resolving]
  - Multiple sclerosis relapse [Not Recovered/Not Resolved]
  - Abdominal discomfort [Not Recovered/Not Resolved]
  - Dizziness [Not Recovered/Not Resolved]
  - Heart rate abnormal [Unknown]
  - Cardiac disorder [Recovering/Resolving]
  - Fall [Unknown]
  - Mouth injury [Unknown]
  - Blood pressure increased [Not Recovered/Not Resolved]
  - Aphasia [Not Recovered/Not Resolved]
  - Pain in extremity [Unknown]
  - Body height decreased [Recovering/Resolving]
  - Blood pressure decreased [Recovering/Resolving]
  - Condition aggravated [Unknown]
  - Fibromyalgia [Unknown]
  - Asphyxia [Unknown]
  - Chest pain [Recovering/Resolving]
  - Dyspnoea [Recovering/Resolving]
  - Bradycardia [Recovering/Resolving]
  - Expired product administered [Unknown]
  - Head discomfort [Unknown]
  - Anaphylactic shock [Unknown]
  - Pain in extremity [Recovered/Resolved]
  - Malaise [Recovering/Resolving]
  - Headache [Not Recovered/Not Resolved]
  - Tremor [Not Recovered/Not Resolved]
  - Skin discolouration [Recovered/Resolved]
  - Memory impairment [Not Recovered/Not Resolved]
  - Decreased appetite [Recovering/Resolving]
  - Oral mucosal blistering [Unknown]
  - Osteoporosis [Unknown]
  - Paraesthesia [Unknown]
  - Pain [Recovering/Resolving]
  - Weight decreased [Not Recovered/Not Resolved]
  - Neck pain [Not Recovered/Not Resolved]
  - Confusional state [Not Recovered/Not Resolved]
  - Hypokinesia [Recovering/Resolving]
  - Muscular weakness [Unknown]
  - Dyspepsia [Not Recovered/Not Resolved]
  - Arthralgia [Not Recovered/Not Resolved]
  - Ligament sprain [Recovered/Resolved]
  - Limb discomfort [Unknown]
  - Loss of consciousness [Unknown]
  - Tachycardia [Recovering/Resolving]
  - Nausea [Recovering/Resolving]
  - Vomiting [Recovering/Resolving]
  - Rash macular [Not Recovered/Not Resolved]
  - Vulvovaginal injury [Unknown]
  - Vision blurred [Not Recovered/Not Resolved]

NARRATIVE: CASE EVENT DATE: 20130509
